FAERS Safety Report 18577445 (Version 2)
Quarter: 2020Q4

REPORT INFORMATION
  Report Type: Report from Study
  Country: ES (occurrence: ES)
  Receive Date: 20201203
  Receipt Date: 20201211
  Transmission Date: 20210114
  Serious: Yes (Hospitalization)
  Sender: FDA-Public Use
  Company Number: ES-JNJFOC-20201044048

PATIENT
  Age: 80 Year
  Sex: Male
  Weight: 80.3 kg

DRUGS (5)
  1. ABIRATERONE ACETATE. [Suspect]
     Active Substance: ABIRATERONE ACETATE
     Indication: PROSTATE CANCER METASTATIC
     Dosage: MED KIT NO 220903
     Route: 048
     Dates: start: 20201014, end: 20201026
  2. ABIRATERONE ACETATE. [Suspect]
     Active Substance: ABIRATERONE ACETATE
     Indication: PROSTATE CANCER METASTATIC
     Dosage: 1000/200 MG ONCE
     Route: 048
     Dates: start: 20200929
  3. NIRAPARIB [Suspect]
     Active Substance: NIRAPARIB
     Indication: PROSTATE CANCER METASTATIC
     Dosage: MED KIT NO 100983
     Route: 048
     Dates: start: 20201014, end: 20201023
  4. NIRAPARIB [Suspect]
     Active Substance: NIRAPARIB
  5. PREDNISONE. [Suspect]
     Active Substance: PREDNISONE
     Indication: PROSTATE CANCER METASTATIC
     Dosage: MED KIT NO 300440?MOST RECENT DOSE 27-OCT-2020
     Route: 048
     Dates: start: 20201014

REACTIONS (3)
  - Anaemia [Recovered/Resolved]
  - Platelet count decreased [Recovered/Resolved]
  - Neutropenia [Recovered/Resolved]

NARRATIVE: CASE EVENT DATE: 20201026
